FAERS Safety Report 7504867-X (Version None)
Quarter: 2011Q2

REPORT INFORMATION
  Report Type: 
  Country: None (occurrence: None)
  Receive Date: 20110526
  Receipt Date: 20110516
  Transmission Date: 20111010
  Serious: Yes (Hospitalization)
  Sender: FDA-Public Use
  Company Number: GB-AMGEN-GBRCT2011010645

PATIENT
  Age: 7 Year
  Sex: Female
  Weight: 20.3 kg

DRUGS (15)
  1. ETANERCEPT [Suspect]
     Indication: PRODUCT USED FOR UNKNOWN INDICATION
     Dosage: 7.5 MG, 2 TIMES/WK
     Dates: start: 20030904
  2. AZITHROMYCIN [Concomitant]
     Indication: CYSTIC FIBROSIS
     Dosage: 200 MG, 3 TIMES/WK
     Dates: start: 20030904
  3. CREON [Concomitant]
     Indication: CYSTIC FIBROSIS
     Dosage: ^10,000 350 {0 DAILY^
     Dates: start: 20030904
  4. OMEPRAZOLE [Concomitant]
     Indication: CYSTIC FIBROSIS
     Dosage: 10 MG, 1X/DAY
     Dates: start: 20030904
  5. SODIUM CHLORIDE [Concomitant]
     Indication: CYSTIC FIBROSIS
     Dosage: ^1MMOL/ML 15M'S DAILY^
     Dates: start: 20030904
  6. VITAMIN A                          /00056001/ [Concomitant]
     Indication: CYSTIC FIBROSIS
     Dosage: 1 DF, 1X/DAY
     Dates: start: 20030904
  7. SELENIUM [Concomitant]
     Indication: CYSTIC FIBROSIS
     Dosage: 50 UG, 1X/DAY
     Dates: start: 20030904
  8. ALBUTEROL [Concomitant]
     Indication: PRODUCT USED FOR UNKNOWN INDICATION
     Dosage: 5 MILLIONIU, 2X/WEEK
     Dates: start: 20030904
  9. PREDNISOLONE [Concomitant]
     Indication: CYSTIC FIBROSIS
     Dosage: UNK
     Dates: start: 20030904
  10. IBUPROFEN [Concomitant]
     Indication: CYSTIC FIBROSIS
     Dosage: 200 MG, 3X/DAY
     Route: 048
     Dates: start: 20030301
  11. VITAMIN E                          /00110501/ [Concomitant]
     Indication: CYSTIC FIBROSIS
     Dosage: 200 MG, QD
     Dates: start: 20030904
  12. ACETAMINOPHEN [Concomitant]
     Indication: CYSTIC FIBROSIS
     Dosage: UNK, AS NEEDED
     Route: 048
     Dates: start: 20030904
  13. VITAMIN A [Concomitant]
     Indication: CYSTIC FIBROSIS
     Dosage: 600 UNITS, 1X/DAY
     Dates: start: 20030904
  14. VITAMIN K TAB [Concomitant]
     Indication: CYSTIC FIBROSIS
     Dosage: 200 MG, 1X/DAY
     Dates: start: 20030904
  15. ACETYLCYSTEINE [Concomitant]
     Indication: CYSTIC FIBROSIS
     Dosage: UNK
     Dates: start: 20030904

REACTIONS (11)
  - HEPATOSPLENOMEGALY [None]
  - ABDOMINAL DISTENSION [None]
  - JOINT EFFUSION [None]
  - RESPIRATORY DISORDER [None]
  - CLUBBING [None]
  - PRODUCTIVE COUGH [None]
  - WEIGHT DECREASED [None]
  - ASTHENIA [None]
  - ARTHRALGIA [None]
  - DECREASED APPETITE [None]
  - RALES [None]
